FAERS Safety Report 4874858-6 (Version None)
Quarter: 2006Q1

REPORT INFORMATION
  Report Type: 
  Country: None (occurrence: None)
  Receive Date: 20060109
  Receipt Date: 20051205
  Transmission Date: 20060701
  Serious: Yes (Hospitalization)
  Sender: FDA-Public Use
  Company Number: FR-AVENTIS-200514017FR

PATIENT
  Age: 29 Year
  Sex: Female

DRUGS (12)
  1. LOVENOX [Suspect]
     Route: 058
     Dates: start: 20051107, end: 20051109
  2. PROFENID ^PHARMA RHODIA^ [Suspect]
     Route: 042
     Dates: start: 20051107, end: 20051108
  3. MYOLASTAN [Suspect]
     Route: 048
     Dates: start: 20051106, end: 20051109
  4. ZOVIRAX [Suspect]
     Route: 042
     Dates: start: 20051107, end: 20051108
  5. ACUPAN [Concomitant]
     Route: 042
     Dates: start: 20051106, end: 20051107
  6. XANAX [Concomitant]
     Route: 048
     Dates: start: 20051106, end: 20051108
  7. MOTILIUM [Concomitant]
     Route: 048
     Dates: start: 20051107, end: 20051109
  8. ACETAMINOPHEN [Concomitant]
     Route: 048
     Dates: start: 20051108, end: 20051108
  9. HEPT-A-MYL [Concomitant]
     Dates: start: 20051108, end: 20051108
  10. LOXAPAC [Concomitant]
     Dates: start: 20051108, end: 20051110
  11. PERFALGAN [Concomitant]
     Route: 042
     Dates: start: 20051105, end: 20051105
  12. CONTRAST PRODUCT WITH IODINE [Concomitant]

REACTIONS (5)
  - ENCEPHALITIS [None]
  - HYPONATRAEMIA [None]
  - PROTEINURIA [None]
  - PYREXIA [None]
  - RENAL FAILURE ACUTE [None]
